FAERS Safety Report 17228261 (Version 1)
Quarter: 2020Q1

REPORT INFORMATION
  Report Type: Spontaneous
  Country: FR (occurrence: FR)
  Receive Date: 20200103
  Receipt Date: 20200103
  Transmission Date: 20200409
  Serious: Yes (Hospitalization)
  Sender: FDA-Public Use
  Company Number: FR-ACCORD-168224

PATIENT
  Age: 86 Year
  Sex: Female

DRUGS (10)
  1. PERINDOPRIL [Suspect]
     Active Substance: PERINDOPRIL
     Route: 048
     Dates: start: 20191110, end: 20191110
  2. PRAVASTATIN. [Suspect]
     Active Substance: PRAVASTATIN
     Route: 048
     Dates: start: 20191110, end: 20191110
  3. XARELTO [Suspect]
     Active Substance: RIVAROXABAN
     Dosage: STRENGTH: 20 MG
     Route: 048
     Dates: start: 20191110, end: 20191110
  4. AMIODARONE [Suspect]
     Active Substance: AMIODARONE
     Route: 048
     Dates: start: 20191110, end: 20191110
  5. TRAMADOL. [Suspect]
     Active Substance: TRAMADOL
     Route: 048
     Dates: start: 20191110, end: 20191110
  6. ESOMEPRAZOLE/ESOMEPRAZOLE MAGNESIUM/ESOMEPRAZOLE SODIUM [Suspect]
     Active Substance: ESOMEPRAZOLE
     Route: 048
     Dates: start: 20191110, end: 20191110
  7. PARACETAMOL [Suspect]
     Active Substance: ACETAMINOPHEN
     Route: 048
     Dates: start: 20191110, end: 20191110
  8. DONEPEZIL/DONEPEZIL HYDROCHLORIDE [Suspect]
     Active Substance: DONEPEZIL HYDROCHLORIDE
     Route: 048
     Dates: start: 20191110, end: 20191110
  9. SPAGULAX [Suspect]
     Active Substance: PLANTAGO OVATA SEED
     Route: 048
     Dates: start: 20191110, end: 20191110
  10. BETAXOLOL. [Suspect]
     Active Substance: BETAXOLOL
     Route: 048
     Dates: start: 20191110, end: 20191110

REACTIONS (3)
  - Bradycardia [Not Recovered/Not Resolved]
  - Electrocardiogram QT prolonged [Not Recovered/Not Resolved]
  - Toxicity to various agents [Unknown]

NARRATIVE: CASE EVENT DATE: 20191111
